FAERS Safety Report 5704198-4 (Version None)
Quarter: 2008Q2

REPORT INFORMATION
  Report Type: 
  Country: None (occurrence: None)
  Receive Date: 20080414
  Receipt Date: 20051101
  Transmission Date: 20081010
  Serious: Yes (Other)
  Sender: FDA-Public Use
  Company Number: GB-JNJFOC-20080401387

PATIENT
  Age: 78 Year
  Sex: Female
  Weight: 60 kg

DRUGS (4)
  1. IBUPROFEN [Suspect]
     Route: 048
  2. IBUPROFEN [Suspect]
     Indication: OSTEOARTHRITIS
     Route: 048
  3. DIHYDROCODEINE [Suspect]
     Indication: OSTEOARTHRITIS
     Route: 048
  4. PAMIDRONATE DISODIUM [Suspect]
     Indication: OSTEOARTHRITIS
     Route: 042

REACTIONS (1)
  - ERYTHEMA MULTIFORME [None]
